FAERS Safety Report 12608558 (Version 2)
Quarter: 2016Q3

REPORT INFORMATION
  Report Type: Spontaneous
  Country: GB (occurrence: GB)
  Receive Date: 20160729
  Receipt Date: 20160805
  Transmission Date: 20161109
  Serious: Yes (Other)
  Sender: FDA-Public Use
  Company Number: GB-ABBVIE-16P-167-1688869-00

PATIENT
  Age: 60 Year
  Sex: Female

DRUGS (2)
  1. VALPROATE SODIUM. [Suspect]
     Active Substance: VALPROATE SODIUM
     Indication: SEIZURE
     Route: 065
  2. PHENYTOIN. [Concomitant]
     Active Substance: PHENYTOIN
     Indication: PRODUCT USED FOR UNKNOWN INDICATION

REACTIONS (7)
  - Cognitive disorder [Recovered/Resolved]
  - Ataxia [Recovered/Resolved]
  - Bradykinesia [Recovered/Resolved]
  - Memory impairment [Recovered/Resolved]
  - Electroencephalogram abnormal [Recovered/Resolved]
  - Toxic encephalopathy [Recovered/Resolved]
  - Tremor [Recovered/Resolved]
